FAERS Safety Report 7058076 (Version 3)
Quarter: 2013Q3

REPORT INFORMATION
  Report Type: Spontaneous
  Country: US (occurrence: US)
  Receive Date: 20090722
  Receipt Date: 20130802
  Transmission Date: 20140515
  Serious: No
  Sender: FDA-Public Use
  Company Number: US-BRISTOL-MYERS SQUIBB COMPANY-14611438

PATIENT
  Age: 74 Year
  Sex: Male
  Weight: 69.39 kg

DRUGS (4)
  1. COUMADIN TABS 5 MG [Suspect]
     Dosage: 1 DOSAGEFORM = 5 MG 5 TIMES A WEEK AND 7.5MG ON TUESDAY AND FRIDAY
  2. PROTONIX [Concomitant]
  3. DIOVAN [Concomitant]
  4. TOPROL XL [Concomitant]

REACTIONS (2)
  - International normalised ratio fluctuation [Unknown]
  - Drug ineffective [Unknown]
